FAERS Safety Report 7945838-9 (Version None)
Quarter: 2011Q4

REPORT INFORMATION
  Report Type: 
  Country: None (occurrence: None)
  Receive Date: 20111129
  Receipt Date: 20111115
  Transmission Date: 20120403
  Serious: Yes (Other)
  Sender: FDA-Public Use
  Company Number: PHHY2011US30059

PATIENT
  Sex: Male
  Weight: 82.54 kg

DRUGS (18)
  1. GLEEVEC [Suspect]
     Indication: CHRONIC MYELOID LEUKAEMIA
     Dosage: 400 MG, QD
     Route: 048
     Dates: start: 20020724
  2. ALLOPURINOL [Concomitant]
  3. CELEBREX [Concomitant]
  4. CLONIDINE [Concomitant]
  5. GLEEVEC [Suspect]
     Dosage: 400 MG, DAILY
     Route: 048
     Dates: start: 20110301
  6. FLOVENT [Concomitant]
  7. SIMVASTATIN [Concomitant]
  8. LISINOPRIL [Concomitant]
  9. TRIAMTERENE [Concomitant]
  10. METOPROLOL TARTRATE [Concomitant]
  11. ASPIRIN [Concomitant]
  12. THEOPHYLLINE [Concomitant]
  13. CLONIDINE HCL [Concomitant]
  14. GLEEVEC [Suspect]
     Dosage: 400 MG, QD
     Route: 048
     Dates: start: 20070101
  15. GLEEVEC [Suspect]
     Dosage: 400 MG, DAILY
     Route: 048
     Dates: start: 20080401
  16. TAMSULOSIN HYDROCHLORIDE [Concomitant]
  17. LIPITOR [Concomitant]
  18. AMLODIPINE [Concomitant]

REACTIONS (13)
  - OEDEMA PERIPHERAL [None]
  - OEDEMA [None]
  - BONE PAIN [None]
  - CEREBROVASCULAR ACCIDENT [None]
  - NASOPHARYNGITIS [None]
  - JOINT SWELLING [None]
  - HAEMATURIA [None]
  - EYE DISORDER [None]
  - MYALGIA [None]
  - PAIN [None]
  - MUSCLE SPASMS [None]
  - NASAL CONGESTION [None]
  - NAUSEA [None]
